FAERS Safety Report 11877185 (Version 1)
Quarter: 2015Q4

REPORT INFORMATION
  Report Type: Spontaneous
  Country: US (occurrence: US)
  Receive Date: 20151229
  Receipt Date: 20151229
  Transmission Date: 20160305
  Serious: No
  Sender: FDA-Public Use
  Company Number: US-TARO-2015TAR00925

PATIENT
  Age: 79 Year
  Sex: Female
  Weight: 49.89 kg

DRUGS (5)
  1. HYDROXYCHLOROQUINE SULFATE. [Concomitant]
     Active Substance: HYDROXYCHLOROQUINE SULFATE
  2. TRIAMCINOLONE ACETONIDE CREAM USP 0.1% [Suspect]
     Active Substance: TRIAMCINOLONE ACETONIDE
     Indication: RASH
  3. TRIAMCINOLONE ACETONIDE OINTMENT USP 0.1% [Suspect]
     Active Substance: TRIAMCINOLONE ACETONIDE
     Indication: RASH
  4. TRIAMCINOLONE ACETONIDE CREAM USP 0.1% [Suspect]
     Active Substance: TRIAMCINOLONE ACETONIDE
     Indication: DERMATITIS
     Dosage: 1 DOSAGE UNITS, 2X/DAY AS NEEDED
     Route: 061
     Dates: start: 201509, end: 201509
  5. TRIAMCINOLONE ACETONIDE OINTMENT USP 0.1% [Suspect]
     Active Substance: TRIAMCINOLONE ACETONIDE
     Indication: DERMATITIS
     Dosage: 1 DOSAGE UNITS, 2X/DAY
     Route: 061
     Dates: start: 201509, end: 201509

REACTIONS (5)
  - Pruritus [Not Recovered/Not Resolved]
  - Rash [Not Recovered/Not Resolved]
  - Erythema [Not Recovered/Not Resolved]
  - Urticaria [Not Recovered/Not Resolved]
  - Sleep disorder [Unknown]

NARRATIVE: CASE EVENT DATE: 201509
